FAERS Safety Report 26063955 (Version 1)
Quarter: 2025Q4

REPORT INFORMATION
  Report Type: Spontaneous
  Country: EU (occurrence: EU)
  Receive Date: 20251119
  Receipt Date: 20251119
  Transmission Date: 20260117
  Serious: Yes (Hospitalization, Other)
  Sender: MYLAN
  Company Number: EU-MYLANLABS-2025M1094905

PATIENT
  Sex: Male

DRUGS (1)
  1. CLOZARIL [Suspect]
     Active Substance: CLOZAPINE
     Indication: Schizophrenia
     Dosage: UNK
     Dates: start: 20250424, end: 20251029

REACTIONS (3)
  - Hospitalisation [Unknown]
  - Pneumonia aspiration [Unknown]
  - Sepsis [Unknown]

NARRATIVE: CASE EVENT DATE: 20251101
